FAERS Safety Report 5228323-7 (Version None)
Quarter: 2007Q1

REPORT INFORMATION
  Report Type: 
  Country: None (occurrence: None)
  Receive Date: 20070205
  Receipt Date: 20070123
  Transmission Date: 20070707
  Serious: Yes (Other)
  Sender: FDA-Public Use
  Company Number: DE-JNJFOC-20070200473

PATIENT
  Sex: Male

DRUGS (4)
  1. INFLIXIMAB [Suspect]
     Dosage: 14TH INFUSION
     Route: 042
  2. INFLIXIMAB [Suspect]
     Dosage: SECOND INFUSION
     Route: 042
  3. INFLIXIMAB [Suspect]
     Indication: ANKYLOSING SPONDYLITIS
     Route: 042
  4. PREDNISOLONE [Concomitant]
     Indication: PREMEDICATION
     Route: 065

REACTIONS (5)
  - CARDIOVASCULAR DISORDER [None]
  - COLD SWEAT [None]
  - HYPERSENSITIVITY [None]
  - HYPOTENSION [None]
  - TACHYCARDIA [None]
